FAERS Safety Report 5755354-0 (Version None)
Quarter: 2008Q2

REPORT INFORMATION
  Report Type: 
  Country: None (occurrence: None)
  Receive Date: 20080529
  Receipt Date: 20080529
  Transmission Date: 20081010
  Serious: Yes (Other)
  Sender: FDA-Public Use
  Company Number: None

PATIENT
  Age: 53 Year
  Sex: Female
  Weight: 50.8029 kg

DRUGS (2)
  1. FOSAMAX [Suspect]
     Indication: ADVERSE DRUG REACTION
     Dosage: 1 - 70 MG  WEEKLY  PO
     Route: 048
     Dates: start: 20010101, end: 20070901
  2. BONIVA [Suspect]
     Indication: ADVERSE DRUG REACTION
     Dosage: 1-150 MG MONTHLY PO
     Route: 048
     Dates: start: 20080403, end: 20080505

REACTIONS (8)
  - ASTHENIA [None]
  - BONE DISORDER [None]
  - BRUXISM [None]
  - GINGIVAL BLEEDING [None]
  - GINGIVAL PAIN [None]
  - HEADACHE [None]
  - PAIN IN JAW [None]
  - STOMACH DISCOMFORT [None]
